FAERS Safety Report 12888497 (Version 1)
Quarter: 2016Q4

REPORT INFORMATION
  Report Type: Spontaneous
  Country: SE (occurrence: SE)
  Receive Date: 20161027
  Receipt Date: 20161027
  Transmission Date: 20170207
  Serious: Yes (Hospitalization, Other)
  Sender: FDA-Public Use
  Company Number: SE-ABBVIE-16K-150-1758666-00

PATIENT
  Age: 61 Year
  Sex: Male

DRUGS (3)
  1. METHOTREXATE. [Concomitant]
     Active Substance: METHOTREXATE
     Dates: start: 201108
  2. HUMIRA [Suspect]
     Active Substance: ADALIMUMAB
     Indication: SPONDYLITIS
     Route: 058
     Dates: start: 20141029, end: 20160510
  3. METHOTREXATE. [Concomitant]
     Active Substance: METHOTREXATE
     Indication: ARTHRITIS
     Dates: end: 2010

REACTIONS (9)
  - Neurological examination abnormal [Recovered/Resolved]
  - Muscular weakness [Recovered/Resolved]
  - Cerebrovascular accident [Recovered/Resolved]
  - Campylobacter gastroenteritis [Recovered/Resolved]
  - Mesenteric vein thrombosis [Unknown]
  - Cognitive disorder [Recovered/Resolved]
  - Diplopia [Recovered/Resolved]
  - Muscular weakness [Recovered/Resolved]
  - Vertigo [Recovered/Resolved]

NARRATIVE: CASE EVENT DATE: 201504
